FAERS Safety Report 5201107-1 (Version None)
Quarter: 2007Q1

REPORT INFORMATION
  Report Type: 
  Country: None (occurrence: None)
  Receive Date: 20070103
  Receipt Date: 20061220
  Transmission Date: 20070707
  Serious: Yes (Other)
  Sender: FDA-Public Use
  Company Number: PAR_1173_2006

PATIENT
  Age: 33 Year
  Sex: Female

DRUGS (1)
  1. CLOMIPHENE CITRATE [Suspect]
     Indication: OVULATION INDUCTION
     Dosage: DF VARIABLE PO
     Route: 048

REACTIONS (3)
  - HEREDITARY DISORDER [None]
  - HYPERTRIGLYCERIDAEMIA [None]
  - TYPE III HYPERLIPIDAEMIA [None]
